FAERS Safety Report 24679587 (Version 1)
Quarter: 2024Q4

REPORT INFORMATION
  Report Type: Spontaneous
  Country: US (occurrence: US)
  Receive Date: 20241129
  Receipt Date: 20241129
  Transmission Date: 20250115
  Serious: Yes (Other)
  Sender: ADMA BIOLOGICS
  Company Number: US-ADMA BIOLOGICS INC.-US-2024ADM000174

PATIENT
  Age: 25 Year
  Sex: Female

DRUGS (2)
  1. HUMAN IMMUNOGLOBULIN G [Suspect]
     Active Substance: HUMAN IMMUNOGLOBULIN G
     Indication: Immune system disorder
     Dosage: UNK, MONTHLY
     Route: 042
  2. ABATACEPT [Suspect]
     Active Substance: ABATACEPT
     Indication: Immune system disorder
     Dosage: UNK, MONTHLY
     Route: 042

REACTIONS (6)
  - Acute kidney injury [Unknown]
  - Glomerulonephritis [Unknown]
  - IgA nephropathy [Unknown]
  - Hypertension [Unknown]
  - Cytopenia [Unknown]
  - Off label use [Unknown]
